FAERS Safety Report 18697174 (Version 1)
Quarter: 2021Q1

REPORT INFORMATION
  Report Type: Spontaneous
  Country: US (occurrence: US)
  Receive Date: 20210104
  Receipt Date: 20210104
  Transmission Date: 20210419
  Serious: Yes (Death, Hospitalization, Other)
  Sender: FDA-Public Use
  Company Number: US-TAKEDA-US202013973

PATIENT
  Sex: Male
  Weight: 70.3 kg

DRUGS (8)
  1. GATTEX [Suspect]
     Active Substance: TEDUGLUTIDE\WATER
     Dosage: 0.350 UNIT UNKNOWN, 1X/DAY:QD
     Route: 058
     Dates: start: 20151104
  2. GATTEX [Suspect]
     Active Substance: TEDUGLUTIDE\WATER
     Indication: SHORT-BOWEL SYNDROME
     Dosage: 0.35 MILLILITER, 1X/DAY:QD
     Route: 050
  3. GATTEX [Suspect]
     Active Substance: TEDUGLUTIDE\WATER
     Indication: SHORT-BOWEL SYNDROME
     Dosage: 0.35 MILLILITER, 1X/DAY:QD
     Route: 050
  4. GATTEX [Suspect]
     Active Substance: TEDUGLUTIDE\WATER
     Indication: SHORT-BOWEL SYNDROME
     Dosage: 0.35 MILLILITER, 1X/DAY:QD
     Route: 050
  5. GATTEX [Suspect]
     Active Substance: TEDUGLUTIDE\WATER
     Dosage: 0.350 UNIT UNKNOWN, 1X/DAY:QD
     Route: 058
     Dates: start: 20151104
  6. GATTEX [Suspect]
     Active Substance: TEDUGLUTIDE\WATER
     Dosage: 0.350 UNIT UNKNOWN, 1X/DAY:QD
     Route: 058
     Dates: start: 20151104
  7. GATTEX [Suspect]
     Active Substance: TEDUGLUTIDE\WATER
     Indication: SHORT-BOWEL SYNDROME
     Dosage: 0.35 MILLILITER, 1X/DAY:QD
     Route: 050
  8. GATTEX [Suspect]
     Active Substance: TEDUGLUTIDE\WATER
     Dosage: 0.350 UNIT UNKNOWN, 1X/DAY:QD
     Route: 058
     Dates: start: 20151104

REACTIONS (2)
  - Hospitalisation [Unknown]
  - Death [Fatal]
